FAERS Safety Report 8611080 (Version 5)
Quarter: 2013Q2

REPORT INFORMATION
  Report Type: Spontaneous
  Country: US (occurrence: US)
  Receive Date: 20120612
  Receipt Date: 20130402
  Transmission Date: 20140414
  Serious: Yes (Hospitalization, Other)
  Sender: FDA-Public Use
  Company Number: US-JNJFOC-20120602514

PATIENT
  Age: 84 Year
  Sex: Female
  Weight: 71.22 kg

DRUGS (7)
  1. XARELTO [Suspect]
     Indication: CEREBROVASCULAR ACCIDENT PROPHYLAXIS
     Route: 048
     Dates: start: 201203, end: 201205
  2. XARELTO [Suspect]
     Indication: ATRIAL FIBRILLATION
     Route: 048
     Dates: start: 201203, end: 201205
  3. PAIN MEDICATION UNSPECIFIED [Suspect]
     Indication: PAIN
     Dates: start: 2012
  4. LEVOXYL [Concomitant]
     Indication: THYROID DISORDER
     Dates: start: 20070602
  5. LABETALOL [Concomitant]
     Indication: HYPERTENSION
  6. PRAVASTATIN [Concomitant]
  7. METOPROLOL [Concomitant]

REACTIONS (9)
  - Paralysis [Recovering/Resolving]
  - Pain [Not Recovered/Not Resolved]
  - Intestinal ulcer [Not Recovered/Not Resolved]
  - Hypoaesthesia [Unknown]
  - Fall [Unknown]
  - Weight decreased [Not Recovered/Not Resolved]
  - Product quality issue [Unknown]
  - Condition aggravated [None]
  - Drug dispensing error [None]
